FAERS Safety Report 9369979 (Version 2)
Quarter: 2013Q3

REPORT INFORMATION
  Report Type: Spontaneous
  Country: JP (occurrence: JP)
  Receive Date: 20130626
  Receipt Date: 20130701
  Transmission Date: 20140515
  Serious: Yes (Hospitalization)
  Sender: FDA-Public Use
  Company Number: JP-EISAI INC-E2020-12441-SPO-JP

PATIENT
  Age: 71 Year
  Sex: Female

DRUGS (1)
  1. ARICEPT [Suspect]
     Indication: DEMENTIA ALZHEIMER^S TYPE
     Dosage: 3 MG X 2 DAILY
     Route: 048
     Dates: start: 20130522, end: 20130524

REACTIONS (1)
  - Inappropriate antidiuretic hormone secretion [Recovered/Resolved]
